FAERS Safety Report 21833430 (Version 1)
Quarter: 2023Q1

REPORT INFORMATION
  Report Type: Spontaneous
  Country: PL (occurrence: PL)
  Receive Date: 20230107
  Receipt Date: 20230107
  Transmission Date: 20230417
  Serious: Yes (Other)
  Sender: FDA-Public Use
  Company Number: PL-POLPHARMA-1241281

PATIENT
  Age: 41 Year
  Sex: Male

DRUGS (7)
  1. ATORVASTATIN [Interacting]
     Active Substance: ATORVASTATIN
     Indication: Dyslipidaemia
     Dosage: 40 MG PER DAY
     Route: 065
  2. TRAMADOL [Interacting]
     Active Substance: TRAMADOL
     Indication: Visceral pain
     Dosage: 300 MILLIGRAM, ONCE A DAY
     Route: 065
  3. TRAMADOL [Interacting]
     Active Substance: TRAMADOL
     Dosage: 200 MILLIGRAM, ONCE A DAY
     Route: 065
  4. QUETIAPINE [Interacting]
     Active Substance: QUETIAPINE
     Indication: Sleep disorder
     Dosage: 100 MILLIGRAM, ONCE A DAY
     Route: 065
  5. QUETIAPINE [Interacting]
     Active Substance: QUETIAPINE
     Indication: Anxiety
  6. IBUPROFEN [Concomitant]
     Active Substance: IBUPROFEN
     Indication: Visceral pain
     Dosage: 1800 MILLIGRAM, ONCE A DAY
     Route: 065
  7. OMEPRAZOLE [Concomitant]
     Active Substance: OMEPRAZOLE
     Indication: Abdominal pain upper
     Dosage: 40 MILLIGRAM, ONCE A DAY
     Route: 065

REACTIONS (6)
  - Seizure [Unknown]
  - Pain [Recovered/Resolved]
  - Poor quality sleep [Recovered/Resolved]
  - Drug interaction [Unknown]
  - Drug ineffective for unapproved indication [Unknown]
  - Off label use [Unknown]
